FAERS Safety Report 9445296 (Version 5)
Quarter: 2013Q4

REPORT INFORMATION
  Report Type: Report from Study
  Country: US (occurrence: US)
  Receive Date: 20130807
  Receipt Date: 20131108
  Transmission Date: 20140711
  Serious: Yes (Hospitalization)
  Sender: FDA-Public Use
  Company Number: US-GLAXOSMITHKLINE-Z0020829A

PATIENT
  Age: 58 Year
  Sex: Male
  Weight: 132.8 kg

DRUGS (10)
  1. DABRAFENIB [Suspect]
     Indication: MALIGNANT MELANOMA
     Dosage: 100MG TWICE PER DAY
     Route: 048
     Dates: start: 20130626
  2. TRAMETINIB [Suspect]
     Indication: MALIGNANT MELANOMA
     Dosage: 1MG PER DAY
     Route: 048
     Dates: start: 20130626
  3. IPILIMUMAB [Suspect]
     Indication: MALIGNANT MELANOMA
     Dosage: 3MGK EVERY 3 WEEKS
     Route: 042
     Dates: start: 20130709, end: 20130709
  4. AMLODIPINE [Concomitant]
     Indication: HYPERTENSION
     Dosage: 10MG PER DAY
     Route: 048
     Dates: start: 20100605
  5. LISINOPRIL + HYDROCHLOROTHIAZIDE [Concomitant]
     Indication: HYPERTENSION
     Route: 048
     Dates: start: 20080605
  6. METFORMIN [Concomitant]
     Indication: DIABETES MELLITUS
     Dosage: 1000MG TWICE PER DAY
     Route: 048
     Dates: start: 20110605
  7. LIRAGLUTIDE [Concomitant]
     Indication: DIABETES MELLITUS
     Route: 058
     Dates: start: 20120101
  8. PIOGLITAZONE [Concomitant]
     Indication: DIABETES MELLITUS
     Dosage: 45MG PER DAY
     Dates: start: 20110605
  9. ATORVASTATIN [Concomitant]
     Indication: HYPERCHOLESTEROLAEMIA
     Dosage: 40MG PER DAY
     Route: 048
     Dates: start: 20030605
  10. TESTOSTERONE [Concomitant]
     Indication: BLOOD TESTOSTERONE DECREASED
     Route: 030
     Dates: start: 20120605

REACTIONS (1)
  - Renal failure [Recovered/Resolved]
